FAERS Safety Report 16427583 (Version 1)
Quarter: 2019Q2

REPORT INFORMATION
  Report Type: Spontaneous
  Country: US (occurrence: US)
  Receive Date: 20190613
  Receipt Date: 20190613
  Transmission Date: 20190711
  Serious: Yes (Other)
  Sender: FDA-Public Use
  Company Number: US-JNJFOC-20190614287

PATIENT

DRUGS (1)
  1. IBRUTINIB [Suspect]
     Active Substance: IBRUTINIB
     Indication: CHRONIC LYMPHOCYTIC LEUKAEMIA REFRACTORY
     Route: 048

REACTIONS (12)
  - Rash [Unknown]
  - Arthralgia [Unknown]
  - Haematoma [Unknown]
  - Ecchymosis [Unknown]
  - Haemorrhage [Unknown]
  - Atrial fibrillation [Unknown]
  - Fatigue [Unknown]
  - Subdural haematoma [Unknown]
  - Drug intolerance [Unknown]
  - Conjunctival haemorrhage [Unknown]
  - Diarrhoea [Unknown]
  - Contusion [Unknown]
